FAERS Safety Report 25007797 (Version 2)
Quarter: 2025Q1

REPORT INFORMATION
  Report Type: Spontaneous
  Country: FR (occurrence: FR)
  Receive Date: 20250225
  Receipt Date: 20250306
  Transmission Date: 20250409
  Serious: Yes (Death, Other)
  Sender: NOVO NORDISK
  Company Number: FR-NOVOPROD-1345500

PATIENT
  Age: 42 Year
  Sex: Male

DRUGS (1)
  1. NOVORAPID [Suspect]
     Active Substance: INSULIN ASPART
     Indication: Product used for unknown indication

REACTIONS (2)
  - Diabetic ketoacidosis [Fatal]
  - Device breakage [Fatal]

NARRATIVE: CASE EVENT DATE: 20241201
